FAERS Safety Report 7226728-6 (Version None)
Quarter: 2011Q1

REPORT INFORMATION
  Report Type: 
  Country: None (occurrence: None)
  Receive Date: 20110105
  Receipt Date: 20101220
  Transmission Date: 20110831
  Serious: Yes (Hospitalization)
  Sender: FDA-Public Use
  Company Number: 2010AR0069

PATIENT
  Age: 28 Month
  Sex: Male

DRUGS (1)
  1. NITISINONE (NITISINONE) [Suspect]
     Indication: TYROSINAEMIA
     Dosage: 2 MG/KG (2 MG/KG, 1 IN 1 D)

REACTIONS (1)
  - LIVER TRANSPLANT [None]
